FAERS Safety Report 17054030 (Version 2)
Quarter: 2019Q4

REPORT INFORMATION
  Report Type: Report from Study
  Country: GB (occurrence: GB)
  Receive Date: 20191120
  Receipt Date: 20191121
  Transmission Date: 20200122
  Serious: Yes (Hospitalization)
  Sender: FDA-Public Use
  Company Number: GB-PFIZER INC-2019494290

PATIENT
  Weight: 23 kg

DRUGS (12)
  1. CYTARABINE. [Suspect]
     Active Substance: CYTARABINE
     Indication: ACUTE MYELOID LEUKAEMIA
     Dosage: 30 MG/M2, AS NEEDED
     Route: 037
     Dates: start: 20191007, end: 20191007
  2. TAZOCIN [Concomitant]
     Active Substance: PIPERACILLIN SODIUM\TAZOBACTAM SODIUM
     Indication: ANTIBIOTIC THERAPY
     Dosage: 2.0 G, UNK
     Dates: start: 20191007
  3. ORAMORPH SR SUSTAINED RELEASE [Concomitant]
     Active Substance: MORPHINE SULFATE
     Indication: ANALGESIC THERAPY
     Dosage: 2.0 MG/M2, AS NEEDED
     Route: 048
     Dates: start: 20191015
  4. GEMTUZUMAB OZOGAMICIN [Suspect]
     Active Substance: GEMTUZUMAB OZOGAMICIN
     Indication: ACUTE MYELOID LEUKAEMIA
     Dosage: 2.6 MG, UNK (OTHER)
     Route: 042
     Dates: start: 20191016, end: 20191018
  5. CHLORPHENAMINE [Concomitant]
     Active Substance: CHLORPHENIRAMINE MALEATE
     Indication: RHINITIS
     Dosage: 5 MG, UNK
     Dates: start: 20191016
  6. MITOXANTRONE HCL [Suspect]
     Active Substance: MITOXANTRONE HYDROCHLORIDE
     Indication: ACUTE MYELOID LEUKAEMIA
     Dosage: 10.4 MG/M2, 1X/DAY
     Route: 042
     Dates: start: 20191009, end: 20191012
  7. AMBISOME [Concomitant]
     Active Substance: AMPHOTERICIN B
     Indication: ANTIFUNGAL TREATMENT
     Dosage: 22 MG/M2, 1X/DAY
     Dates: start: 20191012
  8. PARACETAMOL [Concomitant]
     Active Substance: ACETAMINOPHEN
     Indication: ANALGESIC THERAPY
     Dosage: 250 MG, AS NEEDED
     Dates: start: 20191016
  9. CHLORPHENAMINE [Concomitant]
     Active Substance: CHLORPHENIRAMINE MALEATE
     Indication: ANTIALLERGIC THERAPY
  10. SEPTRIN [Concomitant]
     Active Substance: SULFAMETHOXAZOLE\TRIMETHOPRIM
     Indication: ANTIBIOTIC THERAPY
     Dosage: 360 MG/M2, 2X/DAY, AT WEEKENDS
     Dates: start: 20191012
  11. ALLOPURINOL. [Concomitant]
     Active Substance: ALLOPURINOL
     Indication: BLOOD URIC ACID INCREASED
     Dosage: 100 MG/M2, 3X/DAY
     Dates: start: 20191005, end: 20191009
  12. SENNA [SENNOSIDE A+B] [Concomitant]
     Indication: CONSTIPATION
     Dosage: 7.5 MG/M2, AS NEEDED
     Dates: start: 20191028

REACTIONS (2)
  - Fungal infection [Not Recovered/Not Resolved]
  - Febrile neutropenia [Not Recovered/Not Resolved]

NARRATIVE: CASE EVENT DATE: 20191105
